FAERS Safety Report 6971672-2 (Version None)
Quarter: 2010Q3

REPORT INFORMATION
  Report Type: 
  Country: None (occurrence: None)
  Receive Date: 20100908
  Receipt Date: 20100902
  Transmission Date: 20110219
  Serious: Yes (Hospitalization)
  Sender: FDA-Public Use
  Company Number: PHHO2010AU12417

PATIENT
  Weight: 54.7 kg

DRUGS (5)
  1. ZOLEDRONATE T29581+SOLINJ+BM [Suspect]
     Dosage: 4MG
     Route: 042
     Dates: start: 20050705
  2. ZOLEDRONATE T29581+SOLINJ+BM [Suspect]
     Dosage: 4MG
     Route: 042
     Dates: start: 20100714
  3. REMIFEMIN [Concomitant]
  4. ZOCOR [Concomitant]
  5. NEXIUM [Concomitant]

REACTIONS (6)
  - CALCULUS BLADDER [None]
  - FLANK PAIN [None]
  - HEADACHE [None]
  - NAUSEA [None]
  - PYREXIA [None]
  - URINARY TRACT INFECTION [None]
